FAERS Safety Report 15845415 (Version 3)
Quarter: 2019Q2

REPORT INFORMATION
  Report Type: Report from Study
  Country: CA (occurrence: CA)
  Receive Date: 20190119
  Receipt Date: 20190508
  Transmission Date: 20190711
  Serious: Yes (Other)
  Sender: FDA-Public Use
  Company Number: PHHY2018CA190679

PATIENT
  Age: 38 Year
  Sex: Female

DRUGS (4)
  1. JADENU [Suspect]
     Active Substance: DEFERASIROX
     Dosage: 360 MG QD ALTERNATING WITH 540 MG QD
     Route: 048
  2. JADENU [Suspect]
     Active Substance: DEFERASIROX
     Dosage: 180 MG, QD
     Route: 048
  3. JADENU [Suspect]
     Active Substance: DEFERASIROX
     Dosage: 360 MG, QD
     Route: 048
  4. JADENU [Suspect]
     Active Substance: DEFERASIROX
     Indication: THALASSAEMIA
     Dosage: 900 MG (360MG,180 MG), QD
     Route: 048
     Dates: start: 20181203

REACTIONS (16)
  - Nervousness [Recovering/Resolving]
  - Inappropriate schedule of product administration [Unknown]
  - Intestinal obstruction [Unknown]
  - Food allergy [Recovering/Resolving]
  - Chromaturia [Unknown]
  - Dysgeusia [Unknown]
  - Appetite disorder [Unknown]
  - Headache [Unknown]
  - Asthenia [Recovering/Resolving]
  - Back pain [Unknown]
  - Dizziness [Recovering/Resolving]
  - Abdominal pain upper [Recovering/Resolving]
  - Abdominal pain lower [Unknown]
  - Hepatic pain [Recovered/Resolved]
  - Vomiting [Recovering/Resolving]
  - Abdominal distension [Recovering/Resolving]

NARRATIVE: CASE EVENT DATE: 20181212
